FAERS Safety Report 10967750 (Version 1)
Quarter: 2015Q1

REPORT INFORMATION
  Report Type: Spontaneous
  Country: None (occurrence: None)
  Receive Date: 20150226
  Receipt Date: 20150226
  Transmission Date: 20150721
  Serious: No
  Sender: FDA-Public Use
  Company Number: TPA2010A03796

PATIENT
  Age: 52 Year
  Sex: Male
  Weight: 99.79 kg

DRUGS (4)
  1. LOVASTATIN (LOVASTATIN) [Concomitant]
     Active Substance: LOVASTATIN
  2. PREDNISONE (PREDNISONE) [Concomitant]
     Active Substance: PREDNISONE
  3. ULORIC [Suspect]
     Active Substance: FEBUXOSTAT
     Indication: GOUT
     Route: 048
     Dates: start: 20100623
  4. BENICAR [Concomitant]
     Active Substance: OLMESARTAN MEDOXOMIL

REACTIONS (1)
  - Feeling jittery [None]

NARRATIVE: CASE EVENT DATE: 201006
